FAERS Safety Report 8150988-0 (Version None)
Quarter: 2012Q1

REPORT INFORMATION
  Report Type: 
  Country: None (occurrence: None)
  Receive Date: 20120220
  Receipt Date: 20120210
  Transmission Date: 20120608
  Serious: Yes (Death, Hospitalization)
  Sender: FDA-Public Use
  Company Number: US-BRISTOL-MYERS SQUIBB COMPANY-15339294

PATIENT
  Age: 83 Year
  Sex: Male

DRUGS (14)
  1. ALLOPURINOL [Concomitant]
     Dosage: DOSE100MG BID
     Route: 048
     Dates: start: 20100611
  2. ACETYLSALICYLIC ACID SRT [Concomitant]
     Dosage: EVENY OTHER DAY
     Route: 048
     Dates: start: 20100611
  3. FISH OIL [Concomitant]
  4. TURMERIC [Concomitant]
     Route: 048
  5. ATENOLOL [Concomitant]
     Route: 048
     Dates: start: 20100611
  6. RANITIDINE [Concomitant]
     Dosage: AT BED TIME
     Route: 048
     Dates: start: 20100611
  7. PREDNISONE [Concomitant]
     Dosage: 60MG IN THE MNG AND 20MG IN THE EVENING
     Route: 048
     Dates: start: 20100909
  8. IPILIMUMAB [Suspect]
     Indication: MALIGNANT MELANOMA
     Dosage: 270MG:21JUL-21JUL10 264MG:11AUG-11AUG10 267MG:22SEP-22SEP10 NO.OF COURSES:4
     Route: 042
     Dates: start: 20100721, end: 20100922
  9. ARMODAFINIL [Concomitant]
     Dates: start: 20101104
  10. FUROSEMIDE [Concomitant]
     Route: 048
     Dates: start: 20100611
  11. RESVERATROL [Concomitant]
     Route: 048
  12. LOVASTATIN [Concomitant]
     Dosage: AT BED TIME
     Route: 048
     Dates: start: 20100611
  13. MULTI-VITAMINS [Concomitant]
  14. IMODIUM [Concomitant]

REACTIONS (24)
  - COLITIS [None]
  - BLOOD UREA INCREASED [None]
  - GASTROENTERITIS BACTERIAL [None]
  - CONDITION AGGRAVATED [None]
  - SEPSIS [None]
  - CONFUSIONAL STATE [None]
  - NEOPLASM MALIGNANT [None]
  - PNEUMONIA [None]
  - PYREXIA [None]
  - BLOOD GLUCOSE INCREASED [None]
  - GENERAL PHYSICAL HEALTH DETERIORATION [None]
  - OESOPHAGITIS [None]
  - CARDIAC FAILURE CONGESTIVE [None]
  - DEHYDRATION [None]
  - ATRIAL FIBRILLATION [None]
  - DISEASE PROGRESSION [None]
  - GASTRITIS EROSIVE [None]
  - HYPOTENSION [None]
  - GASTROINTESTINAL HAEMORRHAGE [None]
  - BLOOD ALKALINE PHOSPHATASE INCREASED [None]
  - ATELECTASIS [None]
  - BLOOD CREATININE INCREASED [None]
  - HIATUS HERNIA [None]
  - HYPOPNOEA [None]
